FAERS Safety Report 11976399 (Version 1)
Quarter: 2016Q1

REPORT INFORMATION
  Report Type: Spontaneous
  Country: US (occurrence: US)
  Receive Date: 20160129
  Receipt Date: 20160129
  Transmission Date: 20160526
  Serious: Yes (Other)
  Sender: FDA-Public Use
  Company Number: US-ACTAVIS-2015-26044

PATIENT
  Sex: Female
  Weight: 57 kg

DRUGS (9)
  1. ATENOLOL. [Concomitant]
     Active Substance: ATENOLOL
     Indication: HYPERTENSION
     Dosage: 0.5  OF 25 MG TABLET
     Route: 048
  2. GABAPENTIN (AELLC) [Suspect]
     Active Substance: GABAPENTIN
     Dosage: 600 MG FOUR TIMES A DAY
     Route: 048
  3. VALIUM [Concomitant]
     Active Substance: DIAZEPAM
     Indication: STRESS
     Dosage: 0.5 OF 5 MG TABLET ONCE IN THE MORNING
     Route: 048
  4. GABAPENTIN (AELLC) [Suspect]
     Active Substance: GABAPENTIN
     Indication: HERPES ZOSTER
     Dosage: 2700 MG THREE TIMES DAILY
     Route: 048
     Dates: start: 2000
  5. GABAPENTIN (AELLC) [Suspect]
     Active Substance: GABAPENTIN
     Indication: HERPES ZOSTER
     Dosage: ONE HALF OF A 600 MG TABLET THREE TIMES A DAY
     Route: 048
  6. GABAPENTIN (AELLC) [Suspect]
     Active Substance: GABAPENTIN
     Dosage: 2700 MG, DAILY
     Route: 048
  7. VALIUM [Concomitant]
     Active Substance: DIAZEPAM
     Indication: MUSCLE RELAXANT THERAPY
  8. GABAPENTIN (AELLC) [Suspect]
     Active Substance: GABAPENTIN
     Indication: POST HERPETIC NEURALGIA
     Dosage: 2700 MG FOUR TIMES A DAY
     Route: 048
  9. GABAPENTIN (AELLC) [Suspect]
     Active Substance: GABAPENTIN
     Indication: POST HERPETIC NEURALGIA

REACTIONS (14)
  - Dizziness [Not Recovered/Not Resolved]
  - Drug dispensing error [Unknown]
  - Suicidal ideation [Unknown]
  - Pain [Not Recovered/Not Resolved]
  - Gait disturbance [Not Recovered/Not Resolved]
  - Constipation [Not Recovered/Not Resolved]
  - Abdominal distension [Not Recovered/Not Resolved]
  - Abdominal discomfort [Not Recovered/Not Resolved]
  - Defaecation urgency [Not Recovered/Not Resolved]
  - Malaise [Unknown]
  - Nausea [Not Recovered/Not Resolved]
  - Weight decreased [Not Recovered/Not Resolved]
  - Diarrhoea [Not Recovered/Not Resolved]
  - Decreased appetite [Not Recovered/Not Resolved]

NARRATIVE: CASE EVENT DATE: 2010
